FAERS Safety Report 8165536-9 (Version None)
Quarter: 2012Q1

REPORT INFORMATION
  Report Type: 
  Country: None (occurrence: None)
  Receive Date: 20120223
  Receipt Date: 20120223
  Transmission Date: 20120608
  Serious: Yes (Other)
  Sender: FDA-Public Use
  Company Number: None

PATIENT
  Age: 78 Year
  Sex: Male
  Weight: 59.4212 kg

DRUGS (9)
  1. DIGESTIVE GOLD, ENZYMEDICA [Suspect]
     Indication: GASTROINTESTINAL DISORDER
     Dosage: ONE CAP A DAY ONCE W MEAL ORAL
     Route: 048
     Dates: start: 20110901, end: 20111101
  2. MULTI-VITAMINS [Concomitant]
  3. DIAZEPAM [Concomitant]
  4. SAW PALMETTO [Concomitant]
  5. ATENOLOL [Concomitant]
  6. LUMIGAN [Suspect]
     Indication: GLAUCOMA
     Dosage: DROP IN EACH EYE ONCE BEDTIME OCULAR
     Route: 047
     Dates: start: 20110201, end: 20120130
  7. NIACIN [Concomitant]
  8. ASPIRIN [Concomitant]
  9. FISH OIL (OMEGA 3) [Concomitant]

REACTIONS (3)
  - DIZZINESS [None]
  - DIARRHOEA [None]
  - FLATULENCE [None]
